FAERS Safety Report 6361424-9 (Version None)
Quarter: 2009Q3

REPORT INFORMATION
  Report Type: 
  Country: None (occurrence: None)
  Receive Date: 20090918
  Receipt Date: 20090907
  Transmission Date: 20100115
  Serious: Yes (Hospitalization)
  Sender: FDA-Public Use
  Company Number: JP-PFIZER INC-2009241412

PATIENT
  Age: 79 Year

DRUGS (4)
  1. LIPITOR [Suspect]
     Indication: HYPERCHOLESTEROLAEMIA
     Dosage: 10 MG, 1X/DAY
     Route: 048
     Dates: start: 20090606, end: 20090707
  2. LIPITOR [Suspect]
     Indication: HYPERLIPIDAEMIA
  3. MYSLEE [Suspect]
     Indication: INSOMNIA
     Dosage: 5 MG, 1X/DAY
     Route: 048
     Dates: start: 20090606, end: 20090706
  4. VALSARTAN [Suspect]
     Indication: HYPERTENSION
     Dosage: 80 MG, 1X/DAY
     Route: 048
     Dates: start: 20090606, end: 20090707

REACTIONS (1)
  - LIVER DISORDER [None]
